FAERS Safety Report 4735025-X (Version None)
Quarter: 2005Q3

REPORT INFORMATION
  Report Type: 
  Country: None (occurrence: None)
  Receive Date: 20050804
  Receipt Date: 20020319
  Transmission Date: 20060218
  Serious: Yes (Other)
  Sender: FDA-Public Use
  Company Number: PHFR2002GB04469

PATIENT

DRUGS (2)
  1. RAMIPRIL [Suspect]
  2. DIOVAN [Suspect]

REACTIONS (1)
  - BRONCHOSPASM [None]
